FAERS Safety Report 5952614-5 (Version None)
Quarter: 2008Q4

REPORT INFORMATION
  Report Type: 
  Country: None (occurrence: None)
  Receive Date: 20081031
  Receipt Date: 20071210
  Transmission Date: 20090506
  Serious: Yes (Other)
  Sender: FDA-Public Use
  Company Number: US-WYE-H01710807

PATIENT
  Age: 59 Year
  Sex: Female
  Weight: 63.56 kg

DRUGS (1)
  1. PREMARIN [Suspect]
     Indication: HORMONE REPLACEMENT THERAPY
     Dosage: 1 APPLICATOR 1X PER 1 WK, VAGINAL
     Route: 067

REACTIONS (2)
  - APPLICATION SITE PAIN [None]
  - PRODUCT QUALITY ISSUE [None]
